FAERS Safety Report 8197560-4 (Version None)
Quarter: 2012Q1

REPORT INFORMATION
  Report Type: 
  Country: None (occurrence: None)
  Receive Date: 20120309
  Receipt Date: 20120305
  Transmission Date: 20120608
  Serious: Yes (Hospitalization)
  Sender: FDA-Public Use
  Company Number: PR-ABBOTT-12P-131-0909093-00

PATIENT
  Sex: Female
  Weight: 77.18 kg

DRUGS (6)
  1. PERCOCET [Concomitant]
     Indication: BACK DISORDER
     Route: 048
     Dates: start: 20090101
  2. HUMIRA [Suspect]
     Indication: CROHN'S DISEASE
     Route: 058
     Dates: start: 20090101, end: 20120208
  3. GABAPENTIN [Concomitant]
     Indication: BACK DISORDER
     Dosage: 1 TAB AT BEDTIME
     Route: 048
     Dates: start: 20120220
  4. NAPROXEN [Concomitant]
     Indication: BACK DISORDER
     Dosage: 1 TAB EVERY 12 HOURS AS NEEDED
     Route: 048
     Dates: start: 20120225
  5. HUMIRA [Suspect]
     Route: 058
     Dates: start: 20120227
  6. PREVACID [Concomitant]
     Indication: HIATUS HERNIA

REACTIONS (3)
  - SLEEP DISORDER [None]
  - SKIN ULCER [None]
  - HYPERTENSION [None]
